FAERS Safety Report 18928218 (Version 1)
Quarter: 2021Q1

REPORT INFORMATION
  Report Type: Spontaneous
  Country: US (occurrence: US)
  Receive Date: 20210223
  Receipt Date: 20210223
  Transmission Date: 20210420
  Serious: Yes (Life-Threatening, Hospitalization, Disabling)
  Sender: FDA-Public Use
  Company Number: None

PATIENT
  Age: 87 Year
  Sex: Male
  Weight: 90 kg

DRUGS (1)
  1. DABIGATRAN [Suspect]
     Active Substance: DABIGATRAN
     Indication: ATRIAL FLUTTER
     Route: 048
     Dates: start: 20200117, end: 20210115

REACTIONS (7)
  - Cerebral haemorrhage [None]
  - Fall [None]
  - Unresponsive to stimuli [None]
  - Hypertension [None]
  - Renal impairment [None]
  - Vasogenic cerebral oedema [None]
  - Subarachnoid haemorrhage [None]

NARRATIVE: CASE EVENT DATE: 20210115
